FAERS Safety Report 18415826 (Version 1)
Quarter: 2020Q4

REPORT INFORMATION
  Report Type: Spontaneous
  Country: US (occurrence: US)
  Receive Date: 20201022
  Receipt Date: 20201022
  Transmission Date: 20210114
  Serious: No
  Sender: FDA-Public Use
  Company Number: None

PATIENT
  Sex: Male

DRUGS (1)
  1. TEMAZEPAM 30 MG [Suspect]
     Active Substance: TEMAZEPAM

REACTIONS (2)
  - Fall [None]
  - Therapy change [None]
